FAERS Safety Report 6982598-2 (Version None)
Quarter: 2010Q3

REPORT INFORMATION
  Report Type: 
  Country: None (occurrence: None)
  Receive Date: 20100914
  Receipt Date: 20100217
  Transmission Date: 20110219
  Serious: No
  Sender: FDA-Public Use
  Company Number: US-PFIZER INC-2010023481

PATIENT
  Sex: Female
  Weight: 56.2 kg

DRUGS (2)
  1. LYRICA [Suspect]
     Indication: PAIN IN EXTREMITY
     Dosage: UNK
     Dates: start: 20100101, end: 20100101
  2. ULTRAM [Concomitant]
     Dosage: UNK

REACTIONS (4)
  - ANXIETY [None]
  - INSOMNIA [None]
  - MALAISE [None]
  - PAIN [None]
